FAERS Safety Report 4521563-1 (Version None)
Quarter: 2004Q4

REPORT INFORMATION
  Report Type: 
  Country: None (occurrence: None)
  Receive Date: 20041208
  Receipt Date: 20041208
  Transmission Date: 20050328
  Serious: Yes (Other)
  Sender: FDA-Public Use
  Company Number: None

PATIENT
  Sex: Female

DRUGS (1)
  1. MS CONTIN [Suspect]
     Indication: PAIN
     Dosage: 30 MG 2 Q AM 2 Q PM 1 QHS

REACTIONS (2)
  - DRUG EFFECT DECREASED [None]
  - PAIN EXACERBATED [None]
